FAERS Safety Report 7830487-3 (Version None)
Quarter: 2011Q4

REPORT INFORMATION
  Report Type: 
  Country: None (occurrence: None)
  Receive Date: 20111021
  Receipt Date: 20111012
  Transmission Date: 20120403
  Serious: Yes (Other)
  Sender: FDA-Public Use
  Company Number: JP-JNJFOC-20110203354

PATIENT
  Age: 64 Year
  Sex: Male
  Weight: 68 kg

DRUGS (13)
  1. SOLU-MEDROL [Concomitant]
     Indication: PROPHYLAXIS
     Route: 042
     Dates: start: 20101202, end: 20101202
  2. REMICADE [Suspect]
     Indication: PSORIASIS
     Dosage: TOTAL 5 INFUSIONS
     Route: 042
     Dates: start: 20101202
  3. REMICADE [Suspect]
     Route: 042
     Dates: start: 20101014
  4. REMICADE [Suspect]
     Route: 042
     Dates: start: 20100818
  5. ISONIAZID [Concomitant]
     Indication: ANTIBIOTIC PROPHYLAXIS
     Route: 048
     Dates: start: 20100316, end: 20101202
  6. GLYCYRON [Concomitant]
     Indication: LIVER FUNCTION TEST ABNORMAL
     Dosage: STARTED BEFORE INFLIXIMAB TREATMENT, 6 TABS
     Route: 048
  7. CYCLOSPORINE [Concomitant]
     Indication: PSORIASIS
     Route: 048
  8. DRENISON [Concomitant]
     Indication: PSORIASIS
     Dosage: STARTED BEFORE INFLIXIMAB THERAPY
     Route: 061
  9. CLOBETASOL PROPIONATE [Concomitant]
     Indication: PSORIASIS
     Dosage: STARTED BEFORE INFLIXIMAB THERAPY
     Route: 061
  10. PYDOXAL [Concomitant]
     Indication: PROPHYLAXIS
     Dosage: STARTED BEFORE INFLIXIMAB THERAPY
     Route: 048
     Dates: end: 20101202
  11. URSO 250 [Concomitant]
     Indication: LIVER FUNCTION TEST ABNORMAL
     Dosage: STARTED BEFORE INFLIXIMAB THERAPY
     Route: 048
  12. REMICADE [Suspect]
     Route: 042
     Dates: start: 20100708
  13. REMICADE [Suspect]
     Route: 042
     Dates: start: 20100721

REACTIONS (4)
  - DEPRESSED LEVEL OF CONSCIOUSNESS [None]
  - BLOOD PRESSURE DECREASED [None]
  - HYPOXIA [None]
  - INFUSION RELATED REACTION [None]
